FAERS Safety Report 6454157-1 (Version None)
Quarter: 2009Q4

REPORT INFORMATION
  Report Type: 
  Country: None (occurrence: None)
  Receive Date: 20091124
  Receipt Date: 20091116
  Transmission Date: 20100525
  Serious: Yes (Hospitalization)
  Sender: FDA-Public Use
  Company Number: US-WYE-H11700909

PATIENT
  Age: 35 Year
  Sex: Male
  Weight: 102.6 kg

DRUGS (1)
  1. PRISTIQ [Suspect]
     Indication: DEPRESSION
     Route: 048
     Dates: start: 20090327, end: 20090506

REACTIONS (3)
  - ANGER [None]
  - FEELING ABNORMAL [None]
  - VIOLENCE-RELATED SYMPTOM [None]
